FAERS Safety Report 15935780 (Version 1)
Quarter: 2019Q1

REPORT INFORMATION
  Report Type: Spontaneous
  Country: CN (occurrence: CN)
  Receive Date: 20190208
  Receipt Date: 20190208
  Transmission Date: 20190417
  Serious: Yes (Other)
  Sender: FDA-Public Use
  Company Number: CN-BAXTER-2019BAX002359

PATIENT
  Age: 64 Year
  Sex: Female
  Weight: 37.5 kg

DRUGS (2)
  1. 20% MANNITOL INJECTION [Suspect]
     Active Substance: MANNITOL
     Indication: ANALGESIC THERAPY
     Route: 041
     Dates: start: 20181214, end: 20181214
  2. MIACALCIC [Suspect]
     Active Substance: CALCITONIN SALMON
     Indication: OSTEOPOROSIS PROPHYLAXIS
     Dosage: SALMONELLAE INJECTION
     Route: 030
     Dates: start: 20181214, end: 20181214

REACTIONS (5)
  - Discomfort [Recovering/Resolving]
  - Pyrexia [Recovering/Resolving]
  - Flushing [Recovering/Resolving]
  - Chills [Recovering/Resolving]
  - Nausea [Recovering/Resolving]

NARRATIVE: CASE EVENT DATE: 20181214
